FAERS Safety Report 12002212 (Version 10)
Quarter: 2016Q4

REPORT INFORMATION
  Report Type: Report from Study
  Country: BR (occurrence: BR)
  Receive Date: 20160204
  Receipt Date: 20161115
  Transmission Date: 20170206
  Serious: Yes (Life-Threatening, Hospitalization, Other)
  Sender: FDA-Public Use
  Company Number: PHHY2016BR014467

PATIENT
  Sex: Female
  Weight: 53 kg

DRUGS (13)
  1. OXYCONTIN [Concomitant]
     Active Substance: OXYCODONE HYDROCHLORIDE
     Indication: PAIN
     Route: 048
  2. OMEPRAZOLE. [Concomitant]
     Active Substance: OMEPRAZOLE
     Indication: PRODUCT USED FOR UNKNOWN INDICATION
     Dosage: 20 MG, QD (1 TABLET A DAY)
     Route: 065
  3. AFINITOR [Suspect]
     Active Substance: EVEROLIMUS
     Indication: BREAST CANCER METASTATIC
     Dosage: 10 MG, QD (1 TABLET A DAY)
     Route: 048
     Dates: start: 2012
  4. VEROTINA [Concomitant]
     Indication: PRODUCT USED FOR UNKNOWN INDICATION
     Dosage: UNK
     Route: 048
  5. ZOMETA [Concomitant]
     Active Substance: ZOLEDRONIC ACID
     Indication: METASTASES TO BONE
     Dosage: UNK OT, QMO
     Route: 042
     Dates: start: 2012
  6. AROMASIN [Concomitant]
     Active Substance: EXEMESTANE
     Indication: BREAST CANCER
     Dosage: 25 MG, QD (1 TABLET A DAY)
     Route: 048
     Dates: start: 2012
  7. ZOLADEX [Concomitant]
     Active Substance: GOSERELIN ACETATE
     Indication: BREAST CANCER
     Dosage: 1 OT, Q3MO
     Route: 065
     Dates: start: 2012
  8. DIMORF [Concomitant]
     Active Substance: MORPHINE SULFATE
     Indication: PAIN
     Dosage: UNK UNK, TID
     Route: 048
  9. RIVOTRIL [Concomitant]
     Active Substance: CLONAZEPAM
     Indication: INSOMNIA
     Dosage: 1 DF OF 2 MG, QD
     Route: 048
     Dates: start: 2012
  10. CLONAZEPAM. [Concomitant]
     Active Substance: CLONAZEPAM
     Indication: SLEEP DISORDER
     Dosage: 2 MG, QD (1 TABLET A DAY)
     Route: 048
  11. AFINITOR [Suspect]
     Active Substance: EVEROLIMUS
     Dosage: 10 MG, QD
     Route: 048
  12. AFINITOR [Suspect]
     Active Substance: EVEROLIMUS
     Dosage: 5 MG, QD
     Route: 048
  13. PREDNISONA [Concomitant]
     Active Substance: PREDNISONE
     Indication: PAIN
     Dosage: 20 MG, QD (1 TABLET A DAY)
     Route: 048

REACTIONS (57)
  - Urinary tract infection [Recovered/Resolved]
  - Weight gain poor [Not Recovered/Not Resolved]
  - Pulmonary congestion [Unknown]
  - Dyspnoea [Recovered/Resolved]
  - Stomatitis [Recovered/Resolved]
  - Feeding disorder [Recovered/Resolved]
  - Myopia [Unknown]
  - Dizziness [Recovered/Resolved]
  - Mouth injury [Recovered/Resolved]
  - Influenza [Unknown]
  - Dysuria [Unknown]
  - Feeling abnormal [Unknown]
  - Cough [Recovered/Resolved]
  - Fatigue [Recovered/Resolved]
  - Vision blurred [Not Recovered/Not Resolved]
  - Oral candidiasis [Recovering/Resolving]
  - Pain in extremity [Unknown]
  - Headache [Unknown]
  - Urinary tract infection [Recovered/Resolved]
  - Weight decreased [Not Recovered/Not Resolved]
  - Ageusia [Unknown]
  - Depression [Unknown]
  - Back pain [Recovering/Resolving]
  - Tendonitis [Unknown]
  - Constipation [Unknown]
  - Nasal congestion [Unknown]
  - Decreased appetite [Recovered/Resolved]
  - Oral discomfort [Recovered/Resolved]
  - Abasia [Unknown]
  - Mouth injury [Unknown]
  - Body height decreased [Unknown]
  - Dysstasia [Unknown]
  - Chest pain [Unknown]
  - Urinary tract infection [Recovered/Resolved]
  - Malaise [Unknown]
  - Ear pain [Not Recovered/Not Resolved]
  - Dysgeusia [Recovered/Resolved]
  - Arthralgia [Not Recovered/Not Resolved]
  - Inflammation [Unknown]
  - Aphonia [Unknown]
  - Dysphonia [Recovering/Resolving]
  - Dysphagia [Recovered/Resolved]
  - Nausea [Recovered/Resolved]
  - Neck mass [Recovered/Resolved]
  - Odynophagia [Unknown]
  - Oral pain [Recovered/Resolved]
  - Decreased immune responsiveness [Recovered/Resolved]
  - Pharyngitis [Recovered/Resolved]
  - Gait disturbance [Unknown]
  - Activities of daily living impaired [Unknown]
  - Decreased immune responsiveness [Unknown]
  - Asthma [Recovered/Resolved]
  - Hypophagia [Recovered/Resolved]
  - Pelvic pain [Recovering/Resolving]
  - Labyrinthitis [Recovered/Resolved]
  - Oesophagitis [Recovering/Resolving]
  - Metastases to pelvis [Unknown]

NARRATIVE: CASE EVENT DATE: 2013
